FAERS Safety Report 9281526 (Version 1)
Quarter: 2013Q2

REPORT INFORMATION
  Report Type: Spontaneous
  Country: IT (occurrence: IT)
  Receive Date: 20130509
  Receipt Date: 20130509
  Transmission Date: 20140414
  Serious: Yes (Hospitalization)
  Sender: FDA-Public Use
  Company Number: IT-TEVA-403061ISR

PATIENT
  Age: 53 Year
  Sex: Female

DRUGS (5)
  1. RIBAVIRINA [Suspect]
     Indication: HEPATITIS C
     Dosage: 800 MILLIGRAM DAILY;
     Route: 048
     Dates: start: 20130211, end: 20130404
  2. INCIVO [Suspect]
     Indication: HEPATITIS C
     Dosage: 2250 MILLIGRAM DAILY;
     Route: 048
     Dates: start: 20130328, end: 20130404
  3. PEGINTRON [Suspect]
     Indication: HEPATITIS C
     Dosage: 100MCG WEEKLY
     Route: 058
     Dates: start: 20130211, end: 20130402
  4. ANTRA [Concomitant]
     Indication: ABDOMINAL PAIN UPPER
  5. EUTIROX [Concomitant]
     Indication: HYPOTHYROIDISM

REACTIONS (3)
  - Hypotension [Recovered/Resolved]
  - Vomiting [Recovered/Resolved]
  - Muscle spasms [Recovered/Resolved]
